FAERS Safety Report 25939172 (Version 2)
Quarter: 2025Q4

REPORT INFORMATION
  Report Type: Spontaneous
  Country: JP (occurrence: JP)
  Receive Date: 20251020
  Receipt Date: 20251029
  Transmission Date: 20260117
  Serious: Yes (Other)
  Sender: Ocuvex Therapeutics
  Company Number: JP-SANTENLTD-2025-JPN-009271

PATIENT
  Age: 74 Year
  Sex: Female

DRUGS (3)
  1. OMIDENEPAG ISOPROPYL [Suspect]
     Active Substance: OMIDENEPAG ISOPROPYL
     Indication: Glaucoma
     Dosage: RIGHT EYE
     Route: 047
     Dates: start: 202304, end: 2025
  2. OMIDENEPAG ISOPROPYL [Suspect]
     Active Substance: OMIDENEPAG ISOPROPYL
     Indication: Product used for unknown indication
     Dosage: BOTH EYES
     Route: 047
  3. OMIDENEPAG ISOPROPYL [Suspect]
     Active Substance: OMIDENEPAG ISOPROPYL
     Dosage: PRESCRIBED FOR EYES THAT HAVE NOT UNDERGONE SURGERY
     Route: 047

REACTIONS (2)
  - Cataract [Unknown]
  - Intercepted product prescribing error [Unknown]

NARRATIVE: CASE EVENT DATE: 20251007
